FAERS Safety Report 19560146 (Version 3)
Quarter: 2021Q3

REPORT INFORMATION
  Report Type: Spontaneous
  Country: DK (occurrence: DK)
  Receive Date: 20210716
  Receipt Date: 20210921
  Transmission Date: 20211014
  Serious: Yes (Hospitalization, Other)
  Sender: FDA-Public Use
  Company Number: DK-JNJFOC-20210720620

PATIENT
  Age: 66 Year
  Sex: Female
  Weight: 61.4 kg

DRUGS (2)
  1. AMOROLFINE [Concomitant]
     Active Substance: AMOROLFINE
     Dosage: NAIL VARNISH
  2. SPORANOX [Suspect]
     Active Substance: ITRACONAZOLE
     Indication: ONYCHOMYCOSIS
     Route: 048
     Dates: start: 20190913, end: 20200421

REACTIONS (1)
  - Pseudoaldosteronism [Recovered/Resolved]

NARRATIVE: CASE EVENT DATE: 202004
